FAERS Safety Report 12623077 (Version 2)
Quarter: 2016Q3

REPORT INFORMATION
  Report Type: Spontaneous
  Country: ES (occurrence: ES)
  Receive Date: 20160804
  Receipt Date: 20160805
  Transmission Date: 20161109
  Serious: Yes (Other)
  Sender: FDA-Public Use
  Company Number: ES-JNJFOC-20160724245

PATIENT
  Age: 61 Year
  Sex: Female
  Weight: 42.18 kg

DRUGS (12)
  1. TRAZODONE [Concomitant]
     Active Substance: TRAZODONE HYDROCHLORIDE
     Route: 065
  2. VORTIOXETINE [Concomitant]
     Active Substance: VORTIOXETINE
     Route: 065
  3. PENTOXIFILINA [Concomitant]
     Active Substance: PENTOXIFYLLINE
     Route: 065
  4. CLOBETASOL [Concomitant]
     Active Substance: CLOBETASOL
     Indication: PSORIASIS
     Route: 065
  5. FESOTERODINE [Concomitant]
     Active Substance: FESOTERODINE
     Route: 065
  6. STELARA [Suspect]
     Active Substance: USTEKINUMAB
     Indication: PSORIASIS
     Route: 058
     Dates: start: 20140306
  7. LORAZEPAM. [Concomitant]
     Active Substance: LORAZEPAM
     Route: 065
  8. CLOTIAPINE [Concomitant]
     Active Substance: CLOTHIAPINE
     Route: 065
  9. QUETIAPINE. [Concomitant]
     Active Substance: QUETIAPINE
     Route: 065
  10. OMEPRAZOLE. [Concomitant]
     Active Substance: OMEPRAZOLE
     Route: 065
  11. METFORMIN [Concomitant]
     Active Substance: METFORMIN HYDROCHLORIDE
     Route: 065
  12. BETAHISTINE [Concomitant]
     Active Substance: BETAHISTINE
     Route: 065

REACTIONS (1)
  - Squamous cell carcinoma of the vagina [Not Recovered/Not Resolved]

NARRATIVE: CASE EVENT DATE: 20160627
